FAERS Safety Report 9324216 (Version 1)
Quarter: 2013Q2

REPORT INFORMATION
  Report Type: Report from Study
  Country: JP (occurrence: JP)
  Receive Date: 20130603
  Receipt Date: 20130603
  Transmission Date: 20140414
  Serious: Yes (Other)
  Sender: FDA-Public Use
  Company Number: JP-009507513-1306JPN000359

PATIENT
  Age: 7 Year
  Sex: 0

DRUGS (2)
  1. DEXAMETHASONE [Suspect]
     Route: 048
  2. FAMOTIDINE [Suspect]
     Route: 048

REACTIONS (1)
  - Hepatic function abnormal [Recovered/Resolved]
